FAERS Safety Report 5350650-3 (Version None)
Quarter: 2007Q2

REPORT INFORMATION
  Report Type: 
  Country: None (occurrence: None)
  Receive Date: 20070608
  Receipt Date: 20070604
  Transmission Date: 20071010
  Serious: Yes (Other)
  Sender: FDA-Public Use
  Company Number: JP-AVENTIS-200711316JP

PATIENT
  Age: 63 Year
  Sex: Male

DRUGS (8)
  1. LASIX [Suspect]
     Route: 048
     Dates: start: 20040101, end: 20070521
  2. MAINTATE [Concomitant]
  3. ALLOPURINOL [Concomitant]
  4. OLMETEC [Concomitant]
  5. NORVASC [Concomitant]
  6. CALTAN [Concomitant]
  7. WARFARIN SODIUM [Concomitant]
  8. GASTER D [Concomitant]

REACTIONS (1)
  - PEMPHIGOID [None]
